FAERS Safety Report 24711765 (Version 1)
Quarter: 2024Q4

REPORT INFORMATION
  Report Type: Spontaneous
  Country: FR (occurrence: None)
  Receive Date: 20241209
  Receipt Date: 20241209
  Transmission Date: 20250114
  Serious: Yes (Other)
  Sender: Valinor Pharma
  Company Number: FR-Valinor Pharma, LLC-VLR202412-000149

PATIENT
  Age: 24 Year
  Sex: Female

DRUGS (1)
  1. NALOXEGOL OXALATE [Suspect]
     Active Substance: NALOXEGOL OXALATE
     Indication: Gastrointestinal hypomotility
     Route: 065

REACTIONS (3)
  - Critical illness [Unknown]
  - Product availability issue [Unknown]
  - Therapy interrupted [Unknown]
